FAERS Safety Report 4454617-9 (Version None)
Quarter: 2004Q3

REPORT INFORMATION
  Report Type: 
  Country: None (occurrence: None)
  Receive Date: 20040920
  Receipt Date: 20040920
  Transmission Date: 20050211
  Serious: Yes (Other)
  Sender: FDA-Public Use
  Company Number: None

PATIENT
  Age: 57 Year
  Sex: Female
  Weight: 62.5964 kg

DRUGS (6)
  1. BENZONATATE  DS CAP  200 MG  INWOOD [Suspect]
     Indication: COUGH
     Dosage: 1 3 TIMES ORAL
     Route: 048
     Dates: start: 20040705, end: 20040706
  2. GUAIFENESIN WITH DEXTROMETHORPHAN [Suspect]
     Indication: NASAL CONGESTION
     Dosage: 1 2 TIMES ORAL
     Route: 048
     Dates: start: 20040705, end: 20040706
  3. VICKS INHALATION TABS [Concomitant]
  4. SALINE NOSE DROPS [Concomitant]
  5. NAPROSYN [Concomitant]
  6. ARAMASIN [Concomitant]

REACTIONS (2)
  - AGEUSIA [None]
  - ANOSMIA [None]
